FAERS Safety Report 6766601-0 (Version None)
Quarter: 2010Q2

REPORT INFORMATION
  Report Type: 
  Country: None (occurrence: None)
  Receive Date: 20100611
  Receipt Date: 20100528
  Transmission Date: 20101027
  Serious: Yes (Hospitalization)
  Sender: FDA-Public Use
  Company Number: DE-BAUSCH-2010BL002390

PATIENT
  Age: 4 Month
  Sex: Female

DRUGS (1)
  1. ATROPIN EDO AUGENTROPFEN [Suspect]
     Indication: DRUG USE FOR UNKNOWN INDICATION
     Route: 047
     Dates: start: 20100101, end: 20100101

REACTIONS (2)
  - HYPERTHERMIA [None]
  - RESPIRATORY DISTRESS [None]
